FAERS Safety Report 4578141-8 (Version None)
Quarter: 2005Q1

REPORT INFORMATION
  Report Type: 
  Country: None (occurrence: None)
  Receive Date: 20050209
  Receipt Date: 20050128
  Transmission Date: 20050727
  Serious: Yes (Life-Threatening, Hospitalization)
  Sender: FDA-Public Use
  Company Number: 200410641BYL

PATIENT
  Age: 26 Year
  Sex: Male
  Weight: 70 kg

DRUGS (8)
  1. CIPROXAN (CIPROFLOXACIN HYDROCHLORIDE) [Suspect]
     Indication: TONSILLITIS
     Dosage: 200 MG, TID, ORAL
     Route: 048
     Dates: start: 20041007, end: 20041010
  2. PL [Suspect]
     Indication: TONSILLITIS
     Dosage: TID, ORAL
     Route: 048
     Dates: start: 20041004, end: 20041010
  3. DASEN (SERRAPEPTASE) [Suspect]
     Indication: TONSILLITIS
     Dosage: 10 MG, TID, ORAL
     Route: 048
     Dates: start: 20041004, end: 20041010
  4. TRANEXAMIC ACID [Suspect]
     Indication: TONSILLITIS
     Dosage: TID, ORAL
     Route: 048
     Dates: start: 20041004, end: 20041010
  5. MYCASAAL (MEFENEMIC ACID) [Suspect]
     Indication: TONSILLITIS
     Dosage: 250 MG, PRN, ORAL
     Route: 048
     Dates: start: 20041004
  6. FLOMOX [Concomitant]
  7. BROACT [Concomitant]
  8. CAPISTEN [Concomitant]

REACTIONS (4)
  - CONVULSION [None]
  - DEPRESSED LEVEL OF CONSCIOUSNESS [None]
  - RENAL FAILURE ACUTE [None]
  - RHABDOMYOLYSIS [None]
